FAERS Safety Report 8445234-4 (Version None)
Quarter: 2012Q2

REPORT INFORMATION
  Report Type: 
  Country: None (occurrence: None)
  Receive Date: 20120605
  Receipt Date: 20120524
  Transmission Date: 20120825
  Serious: Yes (Disabling)
  Sender: FDA-Public Use
  Company Number: DSA_57473_2012

PATIENT
  Age: 74 Year
  Sex: Male

DRUGS (12)
  1. NITROLINGUAL [Concomitant]
  2. PRAVASTATIN [Concomitant]
  3. GLICLAZIDE [Concomitant]
  4. DILTIAZEM HYDROCHLORIDE [Suspect]
     Indication: ANGINA PECTORIS
     Dosage: 200 MG QD, 90 MG BID
     Dates: start: 20120514
  5. DILTIAZEM HYDROCHLORIDE [Suspect]
     Indication: ANGINA PECTORIS
     Dosage: 200 MG QD, 90 MG BID
     Dates: end: 20120514
  6. DILTIAZEM HCL [Concomitant]
  7. VALSARTAN [Concomitant]
  8. NU-SEALS ASPIRIN [Concomitant]
  9. BETA BLOCKING AGENTS [Concomitant]
  10. GLUCOPHAGE [Concomitant]
  11. WARFARIN SODIUM [Concomitant]
  12. DIGOXIN [Concomitant]

REACTIONS (4)
  - HEART RATE DECREASED [None]
  - VISION BLURRED [None]
  - DIZZINESS [None]
  - DRY MOUTH [None]
